FAERS Safety Report 16957781 (Version 3)
Quarter: 2020Q1

REPORT INFORMATION
  Report Type: Spontaneous
  Country: US (occurrence: US)
  Receive Date: 20191024
  Receipt Date: 20200207
  Transmission Date: 20200409
  Serious: No
  Sender: FDA-Public Use
  Company Number: US-SA-2019SA290654

PATIENT
  Age: 60 Year
  Sex: Female

DRUGS (1)
  1. DUPIXENT [Suspect]
     Active Substance: DUPILUMAB
     Indication: DERMATITIS ATOPIC
     Dosage: 300 MG, QOW
     Route: 058
     Dates: start: 20190626

REACTIONS (4)
  - Ligament rupture [Recovering/Resolving]
  - Hypertension [Recovering/Resolving]
  - Upper respiratory tract infection [Unknown]
  - Meniscus injury [Unknown]

NARRATIVE: CASE EVENT DATE: 2019
